FAERS Safety Report 7991880-1 (Version None)
Quarter: 2011Q4

REPORT INFORMATION
  Report Type: 
  Country: None (occurrence: None)
  Receive Date: 20111219
  Receipt Date: 20111215
  Transmission Date: 20120403
  Serious: Yes (Other)
  Sender: FDA-Public Use
  Company Number: US-ROCHE-1022400

PATIENT
  Sex: Female

DRUGS (3)
  1. ACTONEL [Suspect]
     Indication: OSTEOPOROSIS
     Dates: start: 19980301, end: 20100301
  2. FOSAMAX [Suspect]
     Indication: OSTEOPOROSIS
     Dates: start: 19980301, end: 20100301
  3. BONIVA [Suspect]
     Indication: OSTEOPOROSIS
     Dates: start: 19980301, end: 20100301

REACTIONS (3)
  - EMOTIONAL DISTRESS [None]
  - FEMUR FRACTURE [None]
  - STRESS FRACTURE [None]
